FAERS Safety Report 10346937 (Version 1)
Quarter: 2014Q3

REPORT INFORMATION
  Report Type: Spontaneous
  Country: US (occurrence: US)
  Receive Date: 20140729
  Receipt Date: 20140729
  Transmission Date: 20150326
  Serious: No
  Sender: FDA-Public Use
  Company Number: US-GLAXOSMITHKLINE-A1043101A

PATIENT
  Age: 80 Year
  Sex: Male

DRUGS (10)
  1. RYTHMOL [Concomitant]
     Active Substance: PROPAFENONE HYDROCHLORIDE
  2. XARELTO [Concomitant]
     Active Substance: RIVAROXABAN
  3. INSPRA [Concomitant]
     Active Substance: EPLERENONE
  4. JALYN [Suspect]
     Active Substance: DUTASTERIDE\TAMSULOSIN HYDROCHLORIDE
     Indication: BENIGN PROSTATIC HYPERPLASIA
     Dosage: 1CAP PER DAY
     Route: 048
     Dates: start: 20130826
  5. LIPITOR [Concomitant]
     Active Substance: ATORVASTATIN CALCIUM
  6. DIGOXIN. [Concomitant]
     Active Substance: DIGOXIN
  7. MICARDIS [Concomitant]
     Active Substance: TELMISARTAN
  8. ASPIRIN. [Concomitant]
     Active Substance: ASPIRIN
  9. COREG [Concomitant]
     Active Substance: CARVEDILOL
  10. ZETIA [Concomitant]
     Active Substance: EZETIMIBE

REACTIONS (3)
  - Drug ineffective [Unknown]
  - Dysuria [Unknown]
  - Retrograde ejaculation [Not Recovered/Not Resolved]

NARRATIVE: CASE EVENT DATE: 20130909
